FAERS Safety Report 9822180 (Version 3)
Quarter: 2014Q2

REPORT INFORMATION
  Report Type: Spontaneous
  Country: JP (occurrence: JP)
  Receive Date: 20140116
  Receipt Date: 20140610
  Transmission Date: 20141212
  Serious: Yes (Life-Threatening, Hospitalization, Other)
  Sender: FDA-Public Use
  Company Number: PHHY2014JP003160

PATIENT
  Age: 83 Year
  Sex: Female
  Weight: 45.5 kg

DRUGS (10)
  1. TASIGNA [Suspect]
     Indication: CHRONIC MYELOID LEUKAEMIA
     Dosage: 400 MG, BID
     Route: 048
     Dates: start: 20090826, end: 20100216
  2. TASIGNA [Suspect]
     Dosage: 400 MG, BID
     Route: 048
     Dates: start: 20100226, end: 20131228
  3. PLAVIX [Suspect]
     Indication: CEREBRAL INFARCTION
     Dosage: 75 MG
     Route: 048
     Dates: end: 20131228
  4. OPALMON [Suspect]
     Dates: end: 20131228
  5. MUCOSTA [Concomitant]
     Dosage: 300 MG
     Route: 048
     Dates: start: 20090826, end: 20131228
  6. ALLEGRA [Concomitant]
     Indication: PROPHYLAXIS
     Dosage: 120 MG
     Route: 048
     Dates: start: 20090826, end: 20131228
  7. ZYLORIC [Concomitant]
     Dosage: 200 MG
     Route: 048
     Dates: end: 20131228
  8. LASIX [Concomitant]
     Dosage: 20 MG, DAILY
     Route: 048
     Dates: end: 20131228
  9. MICARDIS [Concomitant]
     Dosage: 40 MG, DAILY
     Route: 048
     Dates: end: 20131228
  10. MERCAZOLE [Concomitant]
     Dosage: 10 MG
     Route: 048
     Dates: end: 20131228

REACTIONS (6)
  - Torsade de pointes [Recovering/Resolving]
  - Electrocardiogram QT prolonged [Recovering/Resolving]
  - Duodenal ulcer haemorrhage [Recovered/Resolved]
  - Arrhythmia [Unknown]
  - Anaemia [Unknown]
  - Dizziness [Unknown]
